FAERS Safety Report 8844527 (Version 1)
Quarter: 2012Q4

REPORT INFORMATION
  Report Type: 
  Country: US (occurrence: US)
  Receive Date: 20121017
  Receipt Date: 20121017
  Transmission Date: 20130627
  Serious: No
  Sender: FDA-Public Use
  Company Number: US-BAUSCH-2012BL004193

PATIENT
  Age: 49 Year
  Sex: Male

DRUGS (1)
  1. LATANOPROST OPHTHALMIC SOLUTION 0.005% [Suspect]
     Indication: OPEN ANGLE GLAUCOMA
     Route: 047
     Dates: start: 20120701, end: 20120705

REACTIONS (3)
  - Drug ineffective [None]
  - Eye pain [Recovered/Resolved]
  - Intraocular pressure increased [Recovered/Resolved]
